FAERS Safety Report 11703938 (Version 1)
Quarter: 2015Q4

REPORT INFORMATION
  Report Type: Spontaneous
  Country: JP (occurrence: JP)
  Receive Date: 20151106
  Receipt Date: 20151106
  Transmission Date: 20160304
  Serious: Yes (Hospitalization)
  Sender: FDA-Public Use
  Company Number: JP-ACCORD-035071

PATIENT
  Age: 70 Year
  Sex: Female

DRUGS (4)
  1. CYCLOPHOSPHAMIDE/CYCLOPHOSPHAMIDE MONOHYDRATE [Suspect]
     Active Substance: CYCLOPHOSPHAMIDE
     Indication: BREAST CANCER STAGE III
     Dosage: FOUR CYCLES OF FEC100 WERE ADMINISTERED  FOLLOWED BY 12 COURSES OF PACLITAXEL
  2. PACLITAXEL/PACLITAXEL LIPOSOME [Suspect]
     Active Substance: PACLITAXEL
     Indication: BREAST CANCER STAGE III
     Dosage: FOUR CYCLES OF FEC100 WERE ADMINISTERED  FOLLOWED BY 12 COURSES OF PACLITAXEL
  3. FLUOROURACIL. [Suspect]
     Active Substance: FLUOROURACIL
     Indication: BREAST CANCER STAGE III
     Dosage: FOUR CYCLES OF FEC100 WERE ADMINISTERED  FOLLOWED BY 12 COURSES OF PACLITAXEL
  4. EPIRUBICIN [Suspect]
     Active Substance: EPIRUBICIN
     Indication: BREAST CANCER STAGE III
     Dosage: FOUR CYCLES OF FEC100 (CUMULATIVE EPIRUBICIN DOSE, 400 MG/M^2) ADMINISTERED  FOLLOWED BY 12 COURSE

REACTIONS (3)
  - Cardiac failure congestive [Recovered/Resolved]
  - Cardiomyopathy [Recovered/Resolved]
  - Pseudomembranous colitis [Unknown]
